FAERS Safety Report 6449598-2 (Version None)
Quarter: 2009Q4

REPORT INFORMATION
  Report Type: 
  Country: None (occurrence: None)
  Receive Date: 20091120
  Receipt Date: 20091117
  Transmission Date: 20100525
  Serious: Yes (Death)
  Sender: FDA-Public Use
  Company Number: US-CELGENEUS-163-21880-09101372

PATIENT
  Sex: Female

DRUGS (3)
  1. REVLIMID [Suspect]
     Indication: MYELODYSPLASTIC SYNDROME
     Route: 048
     Dates: start: 20080701
  2. REVLIMID [Suspect]
     Route: 048
     Dates: start: 20090701, end: 20090801
  3. REVLIMID [Suspect]
     Route: 048
     Dates: start: 20090801

REACTIONS (2)
  - CARDIAC ARREST [None]
  - NEOPLASM PROGRESSION [None]
